FAERS Safety Report 7996155-2 (Version None)
Quarter: 2011Q4

REPORT INFORMATION
  Report Type: 
  Country: None (occurrence: None)
  Receive Date: 20111220
  Receipt Date: 20111214
  Transmission Date: 20120403
  Serious: Yes (Other)
  Sender: FDA-Public Use
  Company Number: PHHY2011DE88743

PATIENT
  Sex: Female
  Weight: 111 kg

DRUGS (6)
  1. PIROXICAM [Concomitant]
     Dosage: 20 MG, QD
     Dates: start: 20050101
  2. VITAMIN B-12 [Concomitant]
     Dosage: 1000 UG, ONCE PER MONTH
     Dates: start: 20091201
  3. OMEPRAZOLE [Concomitant]
     Dosage: 40 MG, BID
     Dates: start: 19910301
  4. TRAMADOL HCL [Concomitant]
     Dosage: 100 MG, QD
     Dates: start: 20110201
  5. LEVOTHYROXINE SODIUM [Concomitant]
     Dosage: 100 MG, QD
     Dates: start: 20090301
  6. INTERFERON BETA-1B [Suspect]
     Indication: RELAPSING-REMITTING MULTIPLE SCLEROSIS
     Dosage: 1 ML, QOD
     Route: 058
     Dates: start: 20100106, end: 20111024

REACTIONS (1)
  - SKIN NECROSIS [None]
